FAERS Safety Report 15075310 (Version 1)
Quarter: 2018Q2

REPORT INFORMATION
  Report Type: Spontaneous
  Country: US (occurrence: US)
  Receive Date: 20180627
  Receipt Date: 20180627
  Transmission Date: 20180711
  Serious: Yes (Hospitalization)
  Sender: FDA-Public Use
  Company Number: US-SAOL THERAPEUTICS-2018SAO00037

PATIENT
  Sex: Female
  Weight: 64.4 kg

DRUGS (6)
  1. BACLOFEN. [Suspect]
     Active Substance: BACLOFEN
     Indication: SPINAL CORD INJURY
  2. DANTRIUM [Concomitant]
     Active Substance: DANTROLENE SODIUM
  3. PLAQUENIL [Concomitant]
     Active Substance: HYDROXYCHLOROQUINE SULFATE
  4. BACLOFEN. [Suspect]
     Active Substance: BACLOFEN
     Indication: MUSCLE SPASTICITY
     Dosage: UNK
     Route: 037
     Dates: start: 201104
  5. GABLOFEN [Suspect]
     Active Substance: BACLOFEN
     Dosage: 1400 ?G, \DAY
     Route: 037
  6. GABLOFEN [Suspect]
     Active Substance: BACLOFEN
     Dosage: 96 ?G, \DAY
     Route: 037

REACTIONS (6)
  - Muscular weakness [Unknown]
  - Gait disturbance [Recovered/Resolved]
  - Device leakage [Recovered/Resolved]
  - Overdose [Not Recovered/Not Resolved]
  - Hypertonia [Recovered/Resolved]
  - Ataxia [Recovered/Resolved]
